FAERS Safety Report 7217747-4 (Version None)
Quarter: 2011Q1

REPORT INFORMATION
  Report Type: 
  Country: None (occurrence: None)
  Receive Date: 20110110
  Receipt Date: 20101231
  Transmission Date: 20110831
  Serious: Yes (Other)
  Sender: FDA-Public Use
  Company Number: TR-ELI_LILLY_AND_COMPANY-TR201101000192

PATIENT
  Age: 40 Year
  Sex: Male

DRUGS (8)
  1. PULMICORT [Concomitant]
     Indication: ASTHMA
     Dosage: UNK, UNK
     Route: 055
  2. TAVANIC [Concomitant]
     Indication: PNEUMONIA
     Dosage: 500 MG, UNK
  3. HUMALOG MIX 75/25 [Suspect]
     Indication: DIABETES MELLITUS
     Dosage: 8 UG, DAILY (1/D)
     Route: 058
     Dates: start: 20101201
  4. LANSOR [Concomitant]
     Dosage: UNK, UNK
     Route: 048
  5. KARVEZIDE [Concomitant]
     Indication: HYPERTENSION
     Dosage: 300 MG, UNK
     Route: 048
  6. COMBIVENT [Concomitant]
     Indication: ASTHMA
     Dosage: UNK, UNK
     Route: 055
  7. LANTUS [Concomitant]
     Indication: DIABETES MELLITUS
     Dosage: UNK, UNK
     Route: 058
  8. MODURETIC 5-50 [Concomitant]
     Dosage: UNK, UNK
     Route: 048

REACTIONS (3)
  - RASH ERYTHEMATOUS [None]
  - PYREXIA [None]
  - HYPERSENSITIVITY [None]
